FAERS Safety Report 7027222-8 (Version None)
Quarter: 2010Q4

REPORT INFORMATION
  Report Type: 
  Country: None (occurrence: None)
  Receive Date: 20101001
  Receipt Date: 20101001
  Transmission Date: 20110411
  Serious: Yes (Other)
  Sender: FDA-Public Use
  Company Number: None

PATIENT
  Age: 55 Year
  Sex: Female
  Weight: 56.6996 kg

DRUGS (1)
  1. BONIVA [Suspect]
     Indication: OSTEOPENIA
     Dosage: 1 TAB MONTHLY PO
     Route: 048
     Dates: start: 20050601, end: 20090901

REACTIONS (1)
  - OSTEONECROSIS OF JAW [None]
